FAERS Safety Report 14811205 (Version 5)
Quarter: 2018Q3

REPORT INFORMATION
  Report Type: Report from Study
  Country: JP (occurrence: JP)
  Receive Date: 20180425
  Receipt Date: 20180803
  Transmission Date: 20181010
  Serious: Yes (Death)
  Sender: FDA-Public Use
  Company Number: JP-BEH-2018090017

PATIENT
  Age: 67 Year
  Sex: Male
  Weight: 70 kg

DRUGS (25)
  1. PLAVIX [Concomitant]
     Active Substance: CLOPIDOGREL BISULFATE
     Route: 048
  2. PLATELETS [Concomitant]
     Active Substance: HUMAN PLATELET, ALLOGENIC
     Dosage: 100 ML, UNK
     Route: 065
  3. BEZAFIBRATE [Concomitant]
     Active Substance: BEZAFIBRATE
     Route: 048
  4. ADONA                              /00056903/ [Concomitant]
     Active Substance: CARBAZOCHROME SODIUM SULFONATE
     Indication: HAEMOSTASIS
     Dosage: 100 MG, UNK
     Route: 042
     Dates: start: 20180417
  5. TRANSAMIN [Concomitant]
     Active Substance: TRANEXAMIC ACID
     Indication: HAEMOSTASIS
     Dosage: 1 G, UNK
     Route: 042
     Dates: start: 20180417
  6. KAYTWO N [Concomitant]
     Active Substance: MENATETRENONE
     Indication: HAEMOSTASIS
     Dosage: 20 MG, UNK
     Route: 042
     Dates: start: 20180417
  7. GLIMEPIRIDE. [Concomitant]
     Active Substance: GLIMEPIRIDE
     Route: 048
  8. METGLUCO [Concomitant]
     Active Substance: METFORMIN HYDROCHLORIDE
     Route: 065
  9. BERIPLEX P/N [Suspect]
     Active Substance: COAGULATION FACTOR IX HUMAN\COAGULATION FACTOR VII HUMAN\COAGULATION FACTOR X HUMAN\PROTEIN C\PROTEIN S HUMAN\PROTHROMBIN
     Indication: HAEMOSTASIS
     Dosage: 1750 IU, UNK
     Route: 042
     Dates: start: 20180417
  10. BOSMIN                             /00003901/ [Concomitant]
     Active Substance: EPINEPHRINE
     Indication: BLOOD PRESSURE MEASUREMENT
     Dosage: 1 MG, UNK
     Route: 042
     Dates: start: 20180417, end: 20180418
  11. PIOGLITAZONE. [Concomitant]
     Active Substance: PIOGLITAZONE
     Route: 048
  12. PARAMIDIN [Concomitant]
     Active Substance: BUCOLOME
     Route: 048
  13. WARFARIN [Concomitant]
     Active Substance: WARFARIN
     Indication: ATRIAL FIBRILLATION
     Dosage: 4.5 MG, UNK
     Route: 048
     Dates: start: 20180417
  14. MEYLON [Concomitant]
     Active Substance: SODIUM BICARBONATE
     Indication: ACIDOSIS
     Dosage: 250 ML, UNK
     Route: 042
     Dates: start: 20180417, end: 20180418
  15. CALCIUM CHLORIDE. [Concomitant]
     Active Substance: CALCIUM CHLORIDE
     Indication: HYPOCALCAEMIA
     Dosage: 20 ML, UNK
     Route: 042
     Dates: start: 20180417, end: 20180418
  16. CIBENOL [Concomitant]
     Active Substance: CIFENLINE
     Route: 048
  17. WARFARIN [Concomitant]
     Active Substance: WARFARIN
     Indication: ANTICOAGULANT THERAPY
     Dosage: 1.5 UNK, UNK
     Route: 048
  18. BAYASPIRIN [Concomitant]
     Active Substance: ASPIRIN
     Dosage: 100 MG, UNK
     Route: 048
  19. SOLU?CORTEF [Concomitant]
     Active Substance: HYDROCORTISONE SODIUM SUCCINATE
     Indication: SHOCK
     Dosage: 100 MG, UNK
     Route: 042
     Dates: start: 20180417
  20. FRESH FROZEN PLASMA [Concomitant]
     Active Substance: HUMAN PLASMA
     Dosage: 200 ML, UNK
     Route: 065
  21. BERIPLEX P/N [Suspect]
     Active Substance: COAGULATION FACTOR IX HUMAN\COAGULATION FACTOR VII HUMAN\COAGULATION FACTOR X HUMAN\PROTEIN C\PROTEIN S HUMAN\PROTHROMBIN
     Indication: HAEMORRHAGE
  22. AMLODIPINE [Concomitant]
     Active Substance: AMLODIPINE BESYLATE
     Route: 048
  23. DOPAMINE [Concomitant]
     Active Substance: DOPAMINE\DOPAMINE HYDROCHLORIDE
     Indication: BLOOD PRESSURE MEASUREMENT
     Dosage: 600 MG, UNK
     Route: 042
     Dates: start: 20180417
  24. RED BLOOD CELLS, CONCENTRATED [Concomitant]
     Active Substance: HUMAN RED BLOOD CELL
     Dosage: 160 ML, UNK
     Route: 065
  25. VALSARTAN. [Concomitant]
     Active Substance: VALSARTAN
     Route: 048

REACTIONS (2)
  - Haemorrhage [Fatal]
  - Drug ineffective [Fatal]
